FAERS Safety Report 25433753 (Version 1)
Quarter: 2025Q2

REPORT INFORMATION
  Report Type: Spontaneous
  Country: US (occurrence: US)
  Receive Date: 20250613
  Receipt Date: 20250613
  Transmission Date: 20250717
  Serious: Yes (Hospitalization, Other)
  Sender: RADIUS PHARM
  Company Number: US-RADIUS HEALTH INC.-US-RADIUS-25049553

PATIENT
  Sex: Female

DRUGS (1)
  1. TYMLOS [Suspect]
     Active Substance: ABALOPARATIDE
     Indication: Senile osteoporosis
     Dosage: 80 MICROGRAM, QD
     Route: 058

REACTIONS (11)
  - Adverse event [Unknown]
  - Pancreatitis [Unknown]
  - Foot fracture [Recovered/Resolved]
  - Vasculitis [Unknown]
  - Bone density decreased [Unknown]
  - Psoriasis [Unknown]
  - Abdominal wall operation [Unknown]
  - Dizziness [Unknown]
  - Headache [Unknown]
  - Injection site pain [Unknown]
  - Blood calcium increased [Unknown]

NARRATIVE: CASE EVENT DATE: 20240101
